FAERS Safety Report 21744513 (Version 1)
Quarter: 2022Q4

REPORT INFORMATION
  Report Type: Spontaneous
  Country: US (occurrence: US)
  Receive Date: 20221218
  Receipt Date: 20221218
  Transmission Date: 20230112
  Serious: Yes (Other)
  Sender: FDA-Public Use
  Company Number: US-BEH-2022153304

PATIENT
  Sex: Female

DRUGS (24)
  1. HIZENTRA [Suspect]
     Active Substance: HUMAN IMMUNOGLOBULIN G
     Indication: Selective IgG subclass deficiency
     Dosage: 6 GRAM, QW
     Route: 058
  2. LASIX [Concomitant]
     Active Substance: FUROSEMIDE
  3. PRAZOSIN HYDROCHLORIDE [Concomitant]
     Active Substance: PRAZOSIN HYDROCHLORIDE
  4. ASPIRIN [Concomitant]
     Active Substance: ASPIRIN
  5. VITAMIN D2 [Concomitant]
     Active Substance: ERGOCALCIFEROL
  6. CLINDAMYCIN HYDROCHLORIDE [Concomitant]
     Active Substance: CLINDAMYCIN HYDROCHLORIDE
  7. LIDOCAINE [Concomitant]
     Active Substance: LIDOCAINE
  8. MOBIC [Concomitant]
     Active Substance: MELOXICAM
  9. DEXILANT [Concomitant]
     Active Substance: DEXLANSOPRAZOLE
  10. ABILIFY [Concomitant]
     Active Substance: ARIPIPRAZOLE
  11. BELSOMRA [Concomitant]
     Active Substance: SUVOREXANT
  12. BUSPIRONE HYDROCHLORIDE [Concomitant]
     Active Substance: BUSPIRONE HYDROCHLORIDE
  13. FENTANYL [Concomitant]
     Active Substance: FENTANYL
  14. INDERAL LA [Concomitant]
     Active Substance: PROPRANOLOL HYDROCHLORIDE
  15. KLONOPIN [Concomitant]
     Active Substance: CLONAZEPAM
  16. NATURE-THROID [Concomitant]
     Active Substance: THYROID, PORCINE
  17. NORCO [Concomitant]
     Active Substance: ACETAMINOPHEN\HYDROCODONE BITARTRATE
  18. PRILOSEC [Concomitant]
     Active Substance: OMEPRAZOLE MAGNESIUM
  19. PROAIR HFA [Concomitant]
     Active Substance: ALBUTEROL SULFATE
  20. VITAMIN D3 [Concomitant]
     Active Substance: CHOLECALCIFEROL
  21. ZANAFLEX [Concomitant]
     Active Substance: TIZANIDINE HYDROCHLORIDE
  22. ZANTAC [Concomitant]
     Active Substance: RANITIDINE HYDROCHLORIDE
  23. ZOLOFT [Concomitant]
     Active Substance: SERTRALINE HYDROCHLORIDE
  24. ASPIRIN [Concomitant]
     Active Substance: ASPIRIN

REACTIONS (4)
  - Malaise [Unknown]
  - Nausea [Unknown]
  - Oedema peripheral [Unknown]
  - Inflammatory marker increased [Unknown]
